FAERS Safety Report 22251453 (Version 2)
Quarter: 2023Q2

REPORT INFORMATION
  Report Type: Report from Study
  Country: AU (occurrence: AU)
  Receive Date: 20230425
  Receipt Date: 20230606
  Transmission Date: 20230722
  Serious: Yes (Other)
  Sender: FDA-Public Use
  Company Number: AU-002147023-NVSC2023AU093366

PATIENT
  Sex: Female

DRUGS (1)
  1. COSENTYX [Suspect]
     Active Substance: SECUKINUMAB
     Indication: Psoriatic arthropathy
     Dosage: 300 MG
     Route: 058
     Dates: start: 20230307

REACTIONS (4)
  - Psoriatic arthropathy [Unknown]
  - Pain in extremity [Unknown]
  - Pruritus [Unknown]
  - Drug ineffective [Unknown]
